FAERS Safety Report 23657706 (Version 1)
Quarter: 2024Q1

REPORT INFORMATION
  Report Type: Spontaneous
  Country: US (occurrence: None)
  Receive Date: 20240320
  Receipt Date: 20240320
  Transmission Date: 20240409
  Serious: No
  Sender: FDA-Public Use
  Company Number: None

PATIENT
  Age: 62 Year
  Sex: Female

DRUGS (4)
  1. OTEZLA [Suspect]
     Active Substance: APREMILAST
     Indication: Psoriasis
     Dosage: FREQUENCY : TWICE A DAY;?
     Route: 048
     Dates: start: 202209
  2. OTEZLA [Suspect]
     Active Substance: APREMILAST
     Indication: Polyarthritis
  3. OTEZLA [Suspect]
     Active Substance: APREMILAST
     Indication: Polyarthritis
  4. OTEZLA [Suspect]
     Active Substance: APREMILAST
     Indication: Polyarthritis

REACTIONS (1)
  - Small intestinal obstruction [None]
